FAERS Safety Report 6538160-9 (Version None)
Quarter: 2010Q1

REPORT INFORMATION
  Report Type: 
  Country: None (occurrence: None)
  Receive Date: 20100112
  Receipt Date: 20100112
  Transmission Date: 20100710
  Serious: Yes (Hospitalization)
  Sender: FDA-Public Use
  Company Number: None

PATIENT
  Age: 68 Year
  Sex: Female
  Weight: 72 kg

DRUGS (2)
  1. EVEROLIMUS (RAD001) 5MG NOVARTIS PHARMACEUTICALS [Suspect]
     Indication: NON-SMALL CELL LUNG CANCER STAGE IV
     Dosage: 5MG DAILY DAYS 1-19 PO
     Route: 048
     Dates: start: 20091111, end: 20100102
  2. DOCETAXEL [Suspect]
     Dosage: 107MG EVERY 3 WEEKS IV
     Route: 042
     Dates: start: 20091111, end: 20091223

REACTIONS (1)
  - DYSPNOEA [None]
